FAERS Safety Report 4905046-2 (Version None)
Quarter: 2006Q1

REPORT INFORMATION
  Report Type: 
  Country: None (occurrence: None)
  Receive Date: 20060203
  Receipt Date: 20060125
  Transmission Date: 20060701
  Serious: Yes (Other)
  Sender: FDA-Public Use
  Company Number: 2006014252

PATIENT
  Age: 80 Year
  Sex: Male

DRUGS (7)
  1. HALCION [Suspect]
     Indication: ILL-DEFINED DISORDER
     Dosage: 1 TAB (1 IN 1 D), ORAL
     Route: 048
  2. CONIEL (BENIDIPINE HYDROCHLORIDE) [Concomitant]
  3. ASPIRIN [Concomitant]
  4. YODEL (SENNA) [Concomitant]
  5. URSO 250 [Concomitant]
  6. ALL OTHER NON-THERAPEUTIC PRODUCTS (ALL OTHER NON-THERAPEUTIC PRODUCTS [Suspect]
  7. VITANEURIN (THIAMINE HYDROCHLORIDE) [Concomitant]

REACTIONS (1)
  - RHABDOMYOLYSIS [None]
